FAERS Safety Report 5359249-6 (Version None)
Quarter: 2007Q2

REPORT INFORMATION
  Report Type: 
  Country: None (occurrence: None)
  Receive Date: 20070615
  Receipt Date: 20070607
  Transmission Date: 20071010
  Serious: Yes (Death)
  Sender: FDA-Public Use
  Company Number: CH-SANOFI-SYNTHELABO-A01200705583

PATIENT
  Sex: Female
  Weight: 63 kg

DRUGS (7)
  1. FOLINIC ACID [Concomitant]
     Dosage: UNK
  2. FLUOROURACIL [Concomitant]
     Dosage: UNK
  3. CIPROFLOXACIN [Concomitant]
     Dates: start: 20070203
  4. SELIPRAN [Concomitant]
     Route: 065
  5. ERYTHROCINE [Concomitant]
     Route: 065
  6. ELOXATIN [Suspect]
     Indication: COLON CANCER
     Dosage: UNK
     Route: 042
     Dates: start: 20070203, end: 20070203
  7. NIHIL [Concomitant]

REACTIONS (1)
  - RESPIRATORY FAILURE [None]
